FAERS Safety Report 4520996-7 (Version None)
Quarter: 2004Q4

REPORT INFORMATION
  Report Type: 
  Country: None (occurrence: None)
  Receive Date: 20041206
  Receipt Date: 20041125
  Transmission Date: 20050328
  Serious: Yes (Hospitalization)
  Sender: FDA-Public Use
  Company Number: 2004-115492-NL

PATIENT
  Age: 68 Year
  Sex: Female

DRUGS (3)
  1. MIRTAZAPINE [Suspect]
     Indication: DEPRESSION
     Dosage: 15 MG QD ORAL
     Route: 048
     Dates: start: 20030605, end: 20030617
  2. RAMIPRIL [Concomitant]
  3. CIMETIDINE [Concomitant]

REACTIONS (5)
  - ANION GAP DECREASED [None]
  - ATAXIA [None]
  - CARDIAC FAILURE CONGESTIVE [None]
  - CONFUSIONAL STATE [None]
  - EXERCISE TOLERANCE DECREASED [None]
